FAERS Safety Report 24126088 (Version 1)
Quarter: 2024Q3

REPORT INFORMATION
  Report Type: Spontaneous
  Country: US (occurrence: US)
  Receive Date: 20240723
  Receipt Date: 20240723
  Transmission Date: 20241016
  Serious: No
  Sender: STALLERGENES
  Company Number: US-Stallergenes SAS-2159471

PATIENT
  Age: 61 Year
  Sex: Female

DRUGS (12)
  1. ORALAIR [Suspect]
     Active Substance: ANTHOXANTHUM ODORATUM POLLEN\DACTYLIS GLOMERATA POLLEN\LOLIUM PERENNE POLLEN\PHLEUM PRATENSE POLLEN\
     Indication: Seasonal allergy
     Route: 060
     Dates: start: 20160923
  2. ORALAIR [Suspect]
     Active Substance: ANTHOXANTHUM ODORATUM POLLEN\DACTYLIS GLOMERATA POLLEN\LOLIUM PERENNE POLLEN\PHLEUM PRATENSE POLLEN\
     Route: 060
     Dates: start: 20240510
  3. ALIGN PROBIOTIC SUPPLEMENT [Concomitant]
  4. ZYRTEC [Concomitant]
     Active Substance: CETIRIZINE HYDROCHLORIDE
  5. PEPCID [Concomitant]
     Active Substance: FAMOTIDINE
  6. MONTELUKAST SODIUM [Concomitant]
     Active Substance: MONTELUKAST SODIUM
  7. MEDROL [Concomitant]
     Active Substance: METHYLPREDNISOLONE
  8. EPINEPHRINE [Concomitant]
     Active Substance: EPINEPHRINE
  9. CROMOLYN SODIUM [Concomitant]
     Active Substance: CROMOLYN SODIUM
  10. BENTYL [Concomitant]
     Active Substance: DICYCLOMINE HYDROCHLORIDE
  11. ALPRAZOLAM EXTENDED-RELEASE [Concomitant]
     Active Substance: ALPRAZOLAM
  12. ALLEGRA [Concomitant]
     Active Substance: FEXOFENADINE HYDROCHLORIDE

REACTIONS (1)
  - Sinusitis [Unknown]
